FAERS Safety Report 10218321 (Version 1)
Quarter: 2014Q2

REPORT INFORMATION
  Report Type: Spontaneous
  Country: GB (occurrence: GB)
  Receive Date: 20140605
  Receipt Date: 20140605
  Transmission Date: 20141212
  Serious: Yes (Other)
  Sender: FDA-Public Use
  Company Number: GB-ROCHE-1412684

PATIENT
  Age: 27 Year
  Sex: Female
  Weight: 56 kg

DRUGS (7)
  1. OMALIZUMAB [Suspect]
     Indication: ASTHMA
     Route: 058
     Dates: start: 20140527
  2. LAMOTRIGINE [Concomitant]
  3. SERETIDE [Concomitant]
     Route: 065
  4. BETASOL [Concomitant]
  5. PREDNISOLONE [Concomitant]
  6. QUETIAPINE [Concomitant]
  7. CETRIZINE [Concomitant]

REACTIONS (4)
  - Injection site swelling [Not Recovered/Not Resolved]
  - Injection site erythema [Not Recovered/Not Resolved]
  - Injection site pruritus [Not Recovered/Not Resolved]
  - Joint swelling [Unknown]
